FAERS Safety Report 16384701 (Version 1)
Quarter: 2019Q2

REPORT INFORMATION
  Report Type: Spontaneous
  Country: FR (occurrence: FR)
  Receive Date: 20190603
  Receipt Date: 20190603
  Transmission Date: 20190711
  Serious: Yes (Hospitalization, Other)
  Sender: FDA-Public Use
  Company Number: FR-SA-A02200901098

PATIENT
  Age: 41 Year
  Sex: Female
  Weight: 57 kg

DRUGS (12)
  1. ELOXATIN [Suspect]
     Active Substance: OXALIPLATIN
     Indication: BREAST CANCER
     Dosage: 60 MG/M2,OTHER
     Route: 042
     Dates: start: 20090115, end: 20090115
  2. ELOXATIN [Suspect]
     Active Substance: OXALIPLATIN
     Indication: RECTAL ADENOCARCINOMA
  3. CAMPTO [Suspect]
     Active Substance: IRINOTECAN
     Indication: COLORECTAL CANCER
  4. ERBITUX [Suspect]
     Active Substance: CETUXIMAB
     Indication: BREAST CANCER
     Dosage: 500 MG/M2,OTHER
     Route: 042
     Dates: start: 20090113, end: 20090113
  5. ERBITUX [Suspect]
     Active Substance: CETUXIMAB
     Indication: COLORECTAL CANCER
  6. CAMPTO [Suspect]
     Active Substance: IRINOTECAN
     Indication: RECTAL ADENOCARCINOMA
  7. CAMPTO [Suspect]
     Active Substance: IRINOTECAN
     Indication: BREAST CANCER
     Dosage: 120 MG/M2,OTHER
     Route: 042
     Dates: start: 20090114, end: 20090114
  8. METHYLPREDNISOLONE. [Concomitant]
     Active Substance: METHYLPREDNISOLONE
     Indication: PREMEDICATION
     Dosage: 60 MG, OTHER
     Route: 042
     Dates: start: 20090113, end: 20090113
  9. ELOXATIN [Suspect]
     Active Substance: OXALIPLATIN
     Indication: COLORECTAL CANCER
  10. POLARAMINE [Concomitant]
     Active Substance: DEXCHLORPHENIRAMINE MALEATE
     Indication: PREMEDICATION
     Dosage: 5 MG,OTHER
     Route: 065
     Dates: start: 20090113, end: 20090113
  11. ERBITUX [Suspect]
     Active Substance: CETUXIMAB
     Indication: RECTAL ADENOCARCINOMA
  12. RANITIDINE. [Concomitant]
     Active Substance: RANITIDINE
     Indication: PREMEDICATION
     Dosage: 50 MG,OTHER
     Route: 048
     Dates: start: 20090113, end: 20090113

REACTIONS (3)
  - Bilirubin conjugated increased [Recovering/Resolving]
  - Blood bilirubin unconjugated increased [Recovering/Resolving]
  - Haptoglobin increased [Recovering/Resolving]

NARRATIVE: CASE EVENT DATE: 20090116
